FAERS Safety Report 17367394 (Version 1)
Quarter: 2020Q1

REPORT INFORMATION
  Report Type: Spontaneous
  Country: DE (occurrence: DE)
  Receive Date: 20200204
  Receipt Date: 20200204
  Transmission Date: 20200409
  Serious: Yes (Other)
  Sender: FDA-Public Use
  Company Number: DE-ALLERGAN-2004374US

PATIENT
  Sex: Female
  Weight: 67 kg

DRUGS (2)
  1. CITALOPRAM HYDROBROMIDE - BP [Suspect]
     Active Substance: CITALOPRAM HYDROBROMIDE
     Indication: PRODUCT USED FOR UNKNOWN INDICATION
     Dosage: UNK
     Route: 065
  2. L-THYROXINE [LEVOTHYROXINE SODIUM] [Concomitant]
     Active Substance: LEVOTHYROXINE SODIUM
     Indication: PRODUCT USED FOR UNKNOWN INDICATION
     Dosage: 150/50 UNK, QD
     Route: 065

REACTIONS (15)
  - Mitral valve incompetence [Unknown]
  - Pain in extremity [Unknown]
  - Pulmonary valve incompetence [Unknown]
  - Arthralgia [Unknown]
  - Hyperlipidaemia [Unknown]
  - Nocturia [Unknown]
  - Tricuspid valve incompetence [Unknown]
  - Limb discomfort [Unknown]
  - Syncope [Unknown]
  - Hypertension [Unknown]
  - Dyspnoea exertional [Unknown]
  - Lipids increased [Unknown]
  - Arteriosclerosis [Unknown]
  - Cardiac arrest [Unknown]
  - Paresis [Unknown]

NARRATIVE: CASE EVENT DATE: 2004
